FAERS Safety Report 13681914 (Version 1)
Quarter: 2017Q2

REPORT INFORMATION
  Report Type: Spontaneous
  Country: IL (occurrence: US)
  Receive Date: 20170623
  Receipt Date: 20170623
  Transmission Date: 20170830
  Serious: Yes (Other)
  Sender: FDA-Public Use
  Company Number: None

PATIENT
  Age: 69 Year
  Sex: Female
  Weight: 76 kg

DRUGS (2)
  1. CARBIDOPA 25 MG TABLET ALVOGEN [Suspect]
     Active Substance: CARBIDOPA
     Dosage: FREQUENCY - 1
  2. LODOSYN [Suspect]
     Active Substance: CARBIDOPA

REACTIONS (3)
  - Vomiting [None]
  - Bedridden [None]
  - Nausea [None]

NARRATIVE: CASE EVENT DATE: 2012
